FAERS Safety Report 20361353 (Version 1)
Quarter: 2022Q1

REPORT INFORMATION
  Report Type: Spontaneous
  Country: US (occurrence: None)
  Receive Date: 20220120
  Receipt Date: 20220120
  Transmission Date: 20220424
  Serious: Yes (Other)
  Sender: FDA-Public Use
  Company Number: None

PATIENT
  Age: 4 Year
  Sex: Male
  Weight: 19.8 kg

DRUGS (5)
  1. MONTELUKAST [Suspect]
     Active Substance: MONTELUKAST SODIUM
     Indication: Asthma
     Dosage: FREQUENCY : DAILY;?
     Route: 048
     Dates: start: 20180130, end: 20211208
  2. MONTELUKAST [Suspect]
     Active Substance: MONTELUKAST SODIUM
     Indication: Rhinitis
  3. BUDESONIDE [Concomitant]
     Active Substance: BUDESONIDE
     Dates: start: 20171120
  4. PROAIR HFA [Concomitant]
     Active Substance: ALBUTEROL SULFATE
     Dates: start: 20171120
  5. loratadine syrup [Concomitant]
     Dates: start: 20190703

REACTIONS (2)
  - Irritability [None]
  - Abnormal behaviour [None]

NARRATIVE: CASE EVENT DATE: 20211208
